FAERS Safety Report 25664163 (Version 1)
Quarter: 2025Q3

REPORT INFORMATION
  Report Type: Spontaneous
  Country: US (occurrence: None)
  Receive Date: 20250808
  Receipt Date: 20250808
  Transmission Date: 20251021
  Serious: Yes (Hospitalization)
  Sender: FDA-CTU
  Company Number: None

PATIENT
  Age: 38 Year
  Sex: Female

DRUGS (12)
  1. BENLYSTA [Suspect]
     Active Substance: BELIMUMAB
     Indication: Systemic lupus erythematosus
     Route: 058
  2. ARISTADA IM PF SYR 441MG-1.6ML INJ [Concomitant]
  3. ALBUTEROL HFA INH (200 PUFFS) 18GM [Concomitant]
  4. BREZTRI AERO SPHERE INHALER 120 INH [Concomitant]
  5. CALCIUM 500MG CHEWABLE TABLETS [Concomitant]
  6. GABAPENTIN [Concomitant]
     Active Substance: GABAPENTIN
  7. HYDROXYCHLOROQUINE [Concomitant]
     Active Substance: HYDROXYCHLOROQUINE
  8. IRON 100 PLUS TABLETS [Concomitant]
  9. PRAZOSIN 1MG CAPSULES [Concomitant]
  10. VITAMIN B1 (THIAMINE) 100MG TABS [Concomitant]
  11. VITAMIN D 1,000IU H/PTNCY CAPSULES [Concomitant]
  12. OLANZAPINE 10MG INJ, 1 VIAL [Concomitant]

REACTIONS (2)
  - Systemic lupus erythematosus [None]
  - Symptom recurrence [None]

NARRATIVE: CASE EVENT DATE: 20250806
